FAERS Safety Report 24575825 (Version 1)
Quarter: 2024Q4

REPORT INFORMATION
  Report Type: Spontaneous
  Country: US (occurrence: US)
  Receive Date: 20241104
  Receipt Date: 20241104
  Transmission Date: 20250115
  Serious: No
  Sender: NOVARTIS
  Company Number: US-002147023-NVSC2024US211002

PATIENT
  Sex: Female

DRUGS (3)
  1. CYCLOSPORINE [Suspect]
     Active Substance: CYCLOSPORINE
     Indication: Product used for unknown indication
     Dosage: UNK (2.9 MG/KG)
     Route: 065
     Dates: start: 2015
  2. ENBREL [Suspect]
     Active Substance: ETANERCEPT
     Indication: Product used for unknown indication
     Dosage: 50 MG
     Route: 058
  3. TOFACITINIB CITRATE [Suspect]
     Active Substance: TOFACITINIB CITRATE
     Indication: Hypersensitivity
     Dosage: 1 DOSAGE FORM, QD
     Route: 065

REACTIONS (3)
  - Necrobiosis lipoidica diabeticorum [Unknown]
  - Condition aggravated [Unknown]
  - Treatment failure [Unknown]
